FAERS Safety Report 4360624-7 (Version None)
Quarter: 2004Q2

REPORT INFORMATION
  Report Type: 
  Country: None (occurrence: None)
  Receive Date: 20040519
  Receipt Date: 20030113
  Transmission Date: 20050107
  Serious: Yes (Life-Threatening, Other)
  Sender: FDA-Public Use
  Company Number: US-MERCK-0301USA01083

PATIENT
  Age: 45 Year
  Sex: Female
  Weight: 114 kg

DRUGS (9)
  1. LIPITOR [Concomitant]
     Indication: BLOOD CHOLESTEROL INCREASED
     Route: 065
  2. LIPITOR [Concomitant]
     Indication: BLOOD TRIGLYCERIDES INCREASED
     Route: 065
  3. AVAPRO [Concomitant]
     Indication: HYPERTENSION
     Route: 065
  4. LEVOXYL [Concomitant]
     Indication: THYROID DISORDER
     Route: 065
  5. PRILOSEC [Concomitant]
     Route: 065
  6. PAXIL [Concomitant]
     Indication: BIPOLAR DISORDER
     Route: 065
  7. VIOXX [Suspect]
     Indication: RENAL PAIN
     Route: 048
     Dates: start: 20011206, end: 20011206
  8. VIOXX [Suspect]
     Indication: INFLAMMATION
     Route: 048
     Dates: start: 20011206, end: 20011206
  9. GEODON [Concomitant]
     Route: 065

REACTIONS (4)
  - ANXIETY [None]
  - BIPOLAR I DISORDER [None]
  - EMOTIONAL DISTRESS [None]
  - RENAL FAILURE ACUTE [None]
